FAERS Safety Report 7797163-7 (Version None)
Quarter: 2011Q4

REPORT INFORMATION
  Report Type: 
  Country: None (occurrence: None)
  Receive Date: 20111005
  Receipt Date: 20110923
  Transmission Date: 20120403
  Serious: Yes (Hospitalization)
  Sender: FDA-Public Use
  Company Number: US-BAYER-2011-063728

PATIENT
  Age: 49 Year
  Sex: Female
  Weight: 79.365 kg

DRUGS (6)
  1. TYLOX [Concomitant]
     Indication: PAIN
     Dosage: UNK
     Dates: start: 20091001
  2. PREVACID [Concomitant]
     Indication: GASTROOESOPHAGEAL REFLUX DISEASE
     Dosage: 30 MG, UNK
     Route: 048
     Dates: start: 20091001
  3. LEVACET [Concomitant]
     Indication: PAIN
     Dosage: UNK
     Dates: start: 20090801
  4. MULTI-VITAMIN [Concomitant]
     Dosage: UNK UNK, QD
     Route: 048
  5. LORTAB [Concomitant]
     Indication: PAIN
     Dosage: UNK
     Dates: start: 20091001
  6. YAZ [Suspect]
     Indication: PREMENSTRUAL SYNDROME
     Dosage: UNK
     Dates: start: 20090821, end: 20091001

REACTIONS (6)
  - PAIN IN EXTREMITY [None]
  - GAIT DISTURBANCE [None]
  - DEEP VEIN THROMBOSIS [None]
  - MENTAL DISORDER [None]
  - ANXIETY [None]
  - OEDEMA PERIPHERAL [None]
